FAERS Safety Report 7112288-7 (Version None)
Quarter: 2010Q4

REPORT INFORMATION
  Report Type: 
  Country: None (occurrence: None)
  Receive Date: 20101119
  Receipt Date: 20100601
  Transmission Date: 20110411
  Serious: No
  Sender: FDA-Public Use
  Company Number: A0862243A

PATIENT
  Age: 62 Year
  Sex: Male

DRUGS (10)
  1. AVODART [Suspect]
     Dosage: 1 PER DAY
     Route: 048
     Dates: start: 20090101
  2. LIPITOR [Concomitant]
  3. OMEPRAZOLE [Concomitant]
  4. NEXIUM [Concomitant]
  5. PRILOSEC [Concomitant]
  6. HYDROCODONE [Concomitant]
  7. FLUOXETINE [Concomitant]
  8. OXAZEPAM [Concomitant]
  9. TRAZODONE HCL [Concomitant]
  10. IBUPROFEN [Concomitant]

REACTIONS (1)
  - ERECTILE DYSFUNCTION [None]
